FAERS Safety Report 16480370 (Version 2)
Quarter: 2019Q3

REPORT INFORMATION
  Report Type: Report from Study
  Country: US (occurrence: US)
  Receive Date: 20190626
  Receipt Date: 20190816
  Transmission Date: 20191004
  Serious: Yes (Hospitalization)
  Sender: FDA-Public Use
  Company Number: US-INTERCEPT-CT2019001017

PATIENT
  Age: 70 Year
  Sex: Female
  Weight: 92 kg

DRUGS (17)
  1. CELEXA [Concomitant]
     Active Substance: CITALOPRAM HYDROBROMIDE
     Indication: DEPRESSION
     Dosage: 20 MG, QD
     Route: 048
     Dates: start: 1993
  2. NALTREXONE [Concomitant]
     Active Substance: NALTREXONE
     Indication: HYPERSENSITIVITY
     Dosage: 50 MG, QD
     Route: 048
     Dates: start: 20181015
  3. VALSARTAN. [Concomitant]
     Active Substance: VALSARTAN
     Indication: HYPERTENSION
     Dosage: 80 MG, QD
     Route: 048
     Dates: start: 20180705
  4. LYRICA [Concomitant]
     Active Substance: PREGABALIN
     Indication: FIBROMYALGIA
     Dosage: 50 MG, TID
     Route: 048
     Dates: start: 20190312
  5. CYMBALTA [Concomitant]
     Active Substance: DULOXETINE HYDROCHLORIDE
     Indication: FIBROMYALGIA
     Dosage: 20 MG, QD
     Route: 048
     Dates: start: 20190318
  6. SUPER B COMPLEX [Concomitant]
     Active Substance: CYANOCOBALAMIN\DEXPANTHENOL\NIACINAMIDE\PYRIDOXINE HYDROCHLORIDE\RIBOFLAVIN 5^-PHOSPHATE SODIUM\THIAMINE HYDROCHLORIDE\VITAMIN B COMPLEX
     Indication: SUPPLEMENTATION THERAPY
     Dosage: 100 MG, QD
     Route: 048
     Dates: start: 2016
  7. CLOBETASOL [Concomitant]
     Active Substance: CLOBETASOL
     Indication: PRURITUS
     Dosage: 0.5 %, QD
     Route: 061
     Dates: start: 20181211
  8. CYCLOSPORINE. [Concomitant]
     Active Substance: CYCLOSPORINE
     Indication: PRURITUS
     Dosage: 100 MG, QD
     Route: 048
     Dates: start: 20181116
  9. ASPIRIN. [Concomitant]
     Active Substance: ASPIRIN
     Indication: HIP SURGERY
  10. OBETICHOLIC ACID [Suspect]
     Active Substance: OBETICHOLIC ACID
     Indication: NON-ALCOHOLIC STEATOHEPATITIS
     Dosage: 25 MG, QD
     Route: 048
     Dates: start: 20180205, end: 20190611
  11. ANCEF [Suspect]
     Active Substance: CEFAZOLIN SODIUM
     Dosage: 2 G, SINGLE DOSE
     Route: 042
     Dates: start: 20190527, end: 20190527
  12. MAGNESIUM HYDROXIDE. [Concomitant]
     Active Substance: MAGNESIUM HYDROXIDE
     Indication: FIBROMYALGIA
     Dosage: 400 MG, QD
     Route: 048
     Dates: start: 2016
  13. OXYCODONE [Concomitant]
     Active Substance: OXYCODONE
     Indication: HIP FRACTURE
     Dosage: 5/325 MG, PRN
     Route: 048
     Dates: start: 20190527, end: 20190621
  14. BENADRYL [Concomitant]
     Active Substance: DIPHENHYDRAMINE HYDROCHLORIDE
     Indication: PRURITUS
     Dosage: 25 MG, PRN
     Route: 048
     Dates: start: 20180312
  15. HYDROXYZINE [Concomitant]
     Active Substance: HYDROXYZINE HYDROCHLORIDE
     Indication: PRURITUS
     Dosage: 10 MG, 1-2 TABLETS AT BEDTIME
     Route: 048
     Dates: start: 20190108, end: 20190722
  16. SYNTHROID [Concomitant]
     Active Substance: LEVOTHYROXINE SODIUM
     Indication: HYPOTHYROIDISM
     Dosage: 137 MCG, QD
     Route: 048
     Dates: start: 20181023, end: 20190612
  17. ASPIRIN. [Concomitant]
     Active Substance: ASPIRIN
     Indication: HIP FRACTURE
     Dosage: 325 MG, QD
     Route: 048
     Dates: start: 20190529, end: 20190618

REACTIONS (2)
  - Cholestasis [Recovered/Resolved]
  - Pruritus [Recovered/Resolved]

NARRATIVE: CASE EVENT DATE: 20190611
